FAERS Safety Report 4307837-8 (Version None)
Quarter: 2004Q1

REPORT INFORMATION
  Report Type: 
  Country: None (occurrence: None)
  Receive Date: 20040226
  Receipt Date: 20030908
  Transmission Date: 20041129
  Serious: Yes (Hospitalization)
  Sender: FDA-Public Use
  Company Number: 2003175948US

PATIENT
  Age: 76 Year
  Sex: Female

DRUGS (5)
  1. CELEBREX [Suspect]
     Indication: BACK PAIN
     Dosage: ORAL
     Route: 048
     Dates: start: 20020201, end: 20030801
  2. CORGARD [Concomitant]
  3. TAGAMET [Concomitant]
  4. ATIVAN [Concomitant]
  5. DOXEPIN (DOXEPIN) [Concomitant]

REACTIONS (1)
  - HAEMATEMESIS [None]
